FAERS Safety Report 14198594 (Version 1)
Quarter: 2017Q4

REPORT INFORMATION
  Report Type: Spontaneous
  Country: US (occurrence: US)
  Receive Date: 20171117
  Receipt Date: 20171117
  Transmission Date: 20180321
  Serious: Yes (Other)
  Sender: FDA-Public Use
  Company Number: US-AMGEN-USASP2017170541

PATIENT
  Sex: Female

DRUGS (3)
  1. CALCITONIN [Concomitant]
     Active Substance: CALCITONIN
     Dosage: UNK
  2. VITAMIN D3 [Concomitant]
     Active Substance: CHOLECALCIFEROL
     Dosage: UNK
  3. PROLIA [Suspect]
     Active Substance: DENOSUMAB
     Indication: OSTEOPOROSIS
     Dosage: 60 MG, UNK
     Route: 065

REACTIONS (6)
  - Femur fracture [Unknown]
  - Decreased activity [Unknown]
  - Ovarian cancer [Unknown]
  - Adverse event [Unknown]
  - Polycystic ovaries [Unknown]
  - Chronic fatigue syndrome [Unknown]
